FAERS Safety Report 10048857 (Version 1)
Quarter: 2014Q1

REPORT INFORMATION
  Report Type: Spontaneous
  Country: US (occurrence: US)
  Receive Date: 20140331
  Receipt Date: 20140331
  Transmission Date: 20141002
  Serious: No
  Sender: FDA-Public Use
  Company Number: US-B.I. PHARMACEUTICALS,INC./RIDGEFIELD-2014-BI-12517BP

PATIENT
  Age: 73 Year
  Sex: Female
  Weight: 141 kg

DRUGS (3)
  1. SPIRIVA [Suspect]
     Indication: ASTHMA
     Dosage: 18 MCG
     Route: 055
     Dates: start: 2011
  2. FLOVENT [Concomitant]
     Indication: ASTHMA
     Dosage: FORMULATION: (INHALATION SPRAY)
     Route: 055
  3. SYMBICORT [Concomitant]
     Indication: ASTHMA
     Dosage: FORMULATION : (INHALATION SPRAY)
     Route: 055

REACTIONS (4)
  - Muscle spasms [Recovered/Resolved]
  - Diarrhoea [Recovered/Resolved]
  - Dysphonia [Not Recovered/Not Resolved]
  - Off label use [Unknown]
